FAERS Safety Report 9441629 (Version 1)
Quarter: 2013Q3

REPORT INFORMATION
  Report Type: Spontaneous
  Country: PT (occurrence: PT)
  Receive Date: 20130806
  Receipt Date: 20130806
  Transmission Date: 20140515
  Serious: Yes (Hospitalization, Other)
  Sender: FDA-Public Use
  Company Number: PT-PAR PHARMACEUTICAL, INC-2013SCPR006057

PATIENT
  Sex: 0

DRUGS (4)
  1. RISPERIDONE [Suspect]
     Indication: MANIA
     Dosage: 2 MG, / DAY
     Route: 065
  2. RISPERIDONE [Interacting]
     Dosage: 4 MG, / DAY
     Route: 065
  3. VALPROATE SEMISODIUM [Interacting]
     Indication: MANIA
     Dosage: 500 MG, / DAY
     Route: 065
  4. VALPROATE SEMISODIUM [Interacting]
     Dosage: 1000 MG, / DAY
     Route: 065

REACTIONS (3)
  - Toxic encephalopathy [Recovered/Resolved]
  - Hyperammonaemic encephalopathy [Recovered/Resolved]
  - Drug interaction [Unknown]
